FAERS Safety Report 17850547 (Version 1)
Quarter: 2020Q2

REPORT INFORMATION
  Report Type: Spontaneous
  Country: US (occurrence: US)
  Receive Date: 20200602
  Receipt Date: 20200602
  Transmission Date: 20200714
  Serious: Yes (Other)
  Sender: FDA-Public Use
  Company Number: None

PATIENT
  Age: 62 Year
  Sex: Female

DRUGS (1)
  1. BYDUREON BCISE [Suspect]
     Active Substance: EXENATIDE
     Dosage: ?          OTHER FREQUENCY:WEEKLY;?
     Route: 058
     Dates: start: 20200428, end: 20200601

REACTIONS (4)
  - Injection site pruritus [None]
  - Injection site reaction [None]
  - Injection site induration [None]
  - Injection site nodule [None]

NARRATIVE: CASE EVENT DATE: 20200601
